FAERS Safety Report 4969317-6 (Version None)
Quarter: 2006Q2

REPORT INFORMATION
  Report Type: 
  Country: None (occurrence: None)
  Receive Date: 20060411
  Receipt Date: 20060123
  Transmission Date: 20061013
  Serious: Yes (Other)
  Sender: FDA-Public Use
  Company Number: 2006AC00175

PATIENT
  Age: 46 Year
  Sex: Male

DRUGS (14)
  1. XYLOCAINE [Suspect]
     Indication: LOCAL ANAESTHESIA
     Dosage: 9 ML MIXTURE 1% XYLOCAINE AND 0.375% BUPIVACAINE
     Route: 056
  2. XYLOCAINE [Suspect]
     Dosage: 5 MINUTES AFTER FIRST DOSE
     Route: 056
  3. BUPIVACAINE [Suspect]
     Indication: LOCAL ANAESTHESIA
     Dosage: 9 ML MIXTURE 1% XYLOCAINE AND 0.375% BUPIVACAINE
     Route: 053
  4. INSULIN [Concomitant]
  5. RAMIPRIL [Concomitant]
  6. TEMAZOPAM [Concomitant]
  7. ATORVASTATIN CALCIUM [Concomitant]
  8. AMITRIPTYLINE HCL [Concomitant]
  9. RESPIRIDONE [Concomitant]
  10. CARBAMAZEPINE [Concomitant]
  11. RANITIDINE [Concomitant]
  12. DOMPERIDONE [Concomitant]
  13. FENTANYL [Concomitant]
     Route: 042
  14. MIDAZOLAM [Concomitant]
     Route: 042

REACTIONS (8)
  - CONFUSIONAL STATE [None]
  - DEAFNESS BILATERAL [None]
  - DRUG EFFECT DECREASED [None]
  - DYSARTHRIA [None]
  - DYSPHONIA [None]
  - HYPERTENSION [None]
  - RESPIRATORY DEPRESSION [None]
  - TACHYCARDIA [None]
